FAERS Safety Report 10047747 (Version 1)
Quarter: 2014Q1

REPORT INFORMATION
  Report Type: Spontaneous
  Country: DE (occurrence: None)
  Receive Date: 20140327
  Receipt Date: 20140327
  Transmission Date: 20141002
  Serious: Yes (Other)
  Sender: FDA-Public Use
  Company Number: AUR-APL-2014-03804

PATIENT
  Age: 41 Year
  Sex: Male

DRUGS (2)
  1. METFORMIN (METFORMIN) [Suspect]
     Indication: TYPE 2 DIABETES MELLITUS
     Dosage: 1500 MG
  2. INSULIN GLARGINE (INSULIN GLARGINE) [Concomitant]

REACTIONS (5)
  - Hepatic steatosis [None]
  - Pruritus [None]
  - Rash [None]
  - Idiosyncratic drug reaction [None]
  - Jaundice [None]
